FAERS Safety Report 4348737-7 (Version None)
Quarter: 2004Q2

REPORT INFORMATION
  Report Type: 
  Country: None (occurrence: None)
  Receive Date: 20040427
  Receipt Date: 20031218
  Transmission Date: 20050107
  Serious: Yes (Hospitalization)
  Sender: FDA-Public Use
  Company Number: DE-MERCK-0312DEU00139

PATIENT
  Age: 41 Month
  Sex: Female
  Weight: 14 kg

DRUGS (1)
  1. MAXALT [Suspect]
     Route: 048
     Dates: start: 20031218, end: 20031218

REACTIONS (5)
  - ACCIDENTAL EXPOSURE [None]
  - ACCIDENTAL OVERDOSE [None]
  - HYPERKINESIA [None]
  - PULSE ABNORMAL [None]
  - SOMNOLENCE [None]
